FAERS Safety Report 8317800-8 (Version None)
Quarter: 2012Q2

REPORT INFORMATION
  Report Type: 
  Country: None (occurrence: None)
  Receive Date: 20120427
  Receipt Date: 20120425
  Transmission Date: 20120825
  Serious: Yes (Other)
  Sender: FDA-Public Use
  Company Number: US-BAYER-2012-040827

PATIENT
  Age: 42 Year

DRUGS (3)
  1. AVELOX [Suspect]
  2. LIPITOR [Concomitant]
  3. YAZ [Concomitant]

REACTIONS (1)
  - HYPERSENSITIVITY [None]
